FAERS Safety Report 9394852 (Version 2)
Quarter: 2013Q3

REPORT INFORMATION
  Report Type: Report from Study
  Country: US (occurrence: US)
  Receive Date: 20130711
  Receipt Date: 20130718
  Transmission Date: 20140515
  Serious: Yes (Hospitalization)
  Sender: FDA-Public Use
  Company Number: US-ROCHE-1243530

PATIENT
  Age: 70 Year
  Sex: Female
  Weight: 66.7 kg

DRUGS (37)
  1. RITUXIMAB [Suspect]
     Indication: CHRONIC GRAFT VERSUS HOST DISEASE
     Route: 042
     Dates: start: 20130314
  2. RITUXIMAB [Suspect]
     Route: 042
     Dates: start: 20130314
  3. ACYCLOVIR [Concomitant]
     Dosage: LAST DOSE GIVEN ON 28/JUN/2013
     Route: 048
  4. NOXAFIL [Concomitant]
     Dosage: 200 MG PER 5 ML WITH MEALS OF 10 G OF FAT; LAST GIVEN ON 28/JUN/2013
     Route: 048
  5. COZAAR [Concomitant]
     Indication: HYPERTENSION
     Route: 048
  6. ATIVAN [Concomitant]
  7. ZOFRAN [Concomitant]
     Indication: NAUSEA
     Route: 048
  8. ROXICODONE [Concomitant]
     Route: 048
  9. PROTONIX (UNITED STATES) [Concomitant]
     Dosage: LAST DOSE GIVEN 28/JUN/2013
     Route: 048
  10. CELLCEPT [Concomitant]
  11. RAPAMUNE [Concomitant]
  12. ENTOCORT [Concomitant]
  13. RESTASIS [Concomitant]
     Dosage: INSTILL ONE TO TWO DROPS IN EACH EYE, USE UP TO SIX TO EIGHT TIMES A DAY
     Route: 065
  14. BACTRIM [Concomitant]
     Dosage: 800 MG/ 160 MG
     Route: 048
  15. BACTRIM [Concomitant]
     Dosage: 1 TABLET; LAST DOSE 28/JUN/2013
     Route: 048
  16. MYCOPHENOLATE MOFETIL [Concomitant]
     Dosage: 1 TO HALF TABET
     Route: 048
  17. MYCOPHENOLATE MOFETIL [Concomitant]
     Dosage: LAST DOSE GIVEN 28/JUN/2013
     Route: 048
  18. BUDESONIDE [Concomitant]
     Dosage: DAILY; LAST DOSE GIVEN ON 28/JUN/2013
     Route: 065
  19. BUDESONIDE [Concomitant]
     Dosage: DAILY
     Route: 048
  20. NORVASC [Concomitant]
     Dosage: DAILY
     Route: 048
  21. VITAMIN D2 [Concomitant]
     Dosage: 50000 UNITS
     Route: 065
  22. ULTRAM [Concomitant]
     Indication: PAIN
     Dosage: ONE TO TWO TABLETS FOR EVERY 6 TO 8 HOURS
     Route: 048
  23. SIROLIMUS [Concomitant]
     Dosage: 3 TABLETS
     Route: 048
  24. SIROLIMUS [Concomitant]
     Dosage: LAST DOSE GIVEN ON 28/JUN/2013
     Route: 048
  25. POTASSIUM CHLORIDE [Concomitant]
     Route: 065
  26. POTASSIUM CHLORIDE [Concomitant]
     Dosage: LAST DOSE GIVEN ON 28/JUN/2013
     Route: 048
  27. ACETAMINOPHEN [Concomitant]
     Dosage: LAST DOSE GIVEN ON 28/JUN/2013
     Route: 048
  28. ALTEPLASE [Concomitant]
     Dosage: LAST DOSE GIVEN ON 28/JUN/2013
     Route: 042
  29. CEFEPIME [Concomitant]
     Dosage: LAST DOSE GIVEN ON 28/JUN/2013
     Route: 042
  30. MAGNESIUM SULFATE [Concomitant]
     Dosage: LAST DOSE GIVEN ON 28/JUN/2013
     Route: 042
  31. ONDANSETRON [Concomitant]
     Dosage: LAST DOSE GIVEN ON 28/JUN/2013
     Route: 048
  32. SIMETHICONE [Concomitant]
     Dosage: 80 - 160 MG; LAST DOSE GIVEN ON 27/JUN/2013
     Route: 048
  33. TRAMADOL [Concomitant]
     Dosage: LAST DOSE GIVEN ON 27/JUN/2013
     Route: 048
  34. DOCUSATE SODIUM [Concomitant]
     Route: 048
  35. PHYTONADIONE [Concomitant]
     Route: 048
  36. SODIUM CHLORIDE [Concomitant]
     Route: 065
  37. CIDOFOVIR [Concomitant]

REACTIONS (5)
  - Deep vein thrombosis [Not Recovered/Not Resolved]
  - Asthenia [Unknown]
  - Decreased appetite [Unknown]
  - Confusional state [Unknown]
  - Nausea [Unknown]
